FAERS Safety Report 4554035-9 (Version None)
Quarter: 2005Q1

REPORT INFORMATION
  Report Type: 
  Country: None (occurrence: None)
  Receive Date: 20050118
  Receipt Date: 20041123
  Transmission Date: 20050727
  Serious: Yes (Hospitalization)
  Sender: FDA-Public Use
  Company Number: US-MERCK-0411USA03707

PATIENT
  Age: 75 Year
  Sex: Female
  Weight: 67 kg

DRUGS (2)
  1. VIOXX [Suspect]
     Indication: ARTHRITIS
     Route: 048
     Dates: start: 20000724, end: 20040614
  2. VIOXX [Suspect]
     Route: 048

REACTIONS (10)
  - ATELECTASIS [None]
  - BLOOD TRIGLYCERIDES INCREASED [None]
  - CARDIAC DISORDER [None]
  - CHEST PAIN [None]
  - DIASTOLIC DYSFUNCTION [None]
  - FEELING ABNORMAL [None]
  - HIATUS HERNIA [None]
  - LIPASE INCREASED [None]
  - SYNCOPE [None]
  - THYROID NEOPLASM [None]
